FAERS Safety Report 7693358-1 (Version None)
Quarter: 2011Q3

REPORT INFORMATION
  Report Type: 
  Country: None (occurrence: None)
  Receive Date: 20110819
  Receipt Date: 20110816
  Transmission Date: 20111222
  Serious: Yes (Death)
  Sender: FDA-Public Use
  Company Number: US-PFIZER INC-2011173321

PATIENT
  Sex: Male

DRUGS (1)
  1. REVATIO [Suspect]
     Dosage: 20 MG, Q8H
     Route: 048
     Dates: start: 20100301

REACTIONS (2)
  - RESPIRATORY FAILURE [None]
  - CARDIAC FAILURE [None]
